FAERS Safety Report 4844770-7 (Version None)
Quarter: 2005Q4

REPORT INFORMATION
  Report Type: 
  Country: None (occurrence: None)
  Receive Date: 20051125
  Receipt Date: 20051114
  Transmission Date: 20060501
  Serious: Yes (Hospitalization)
  Sender: FDA-Public Use
  Company Number: DE200511000160

PATIENT
  Age: 61 Year
  Sex: Male

DRUGS (4)
  1. CYMBALTA [Suspect]
     Indication: DEPRESSION
     Dosage: 60 MG, DAILY (1/D), ORAL
     Route: 048
     Dates: start: 20050602, end: 20050602
  2. MOCLOBEMIDE (MOCLOBEMIDE) [Concomitant]
  3. BISOPROLOL FUMARATE [Concomitant]
  4. LORAZEPAM [Concomitant]

REACTIONS (6)
  - DIPLOPIA [None]
  - DIZZINESS [None]
  - DRUG INTERACTION [None]
  - NAUSEA [None]
  - SEDATION [None]
  - SEROTONIN SYNDROME [None]
